FAERS Safety Report 9180215 (Version 1)
Quarter: 2013Q1

REPORT INFORMATION
  Report Type: Spontaneous
  Country: US (occurrence: US)
  Receive Date: 20130322
  Receipt Date: 20130322
  Transmission Date: 20140127
  Serious: No
  Sender: FDA-Public Use
  Company Number: US-009507513-1303USA006648

PATIENT
  Sex: Male

DRUGS (1)
  1. SAPHRIS [Suspect]
     Route: 048

REACTIONS (3)
  - Insomnia [Recovering/Resolving]
  - Irritability [Recovering/Resolving]
  - Agitation [Recovering/Resolving]
